FAERS Safety Report 14665390 (Version 4)
Quarter: 2019Q2

REPORT INFORMATION
  Report Type: Spontaneous
  Country: US (occurrence: US)
  Receive Date: 20180321
  Receipt Date: 20190404
  Transmission Date: 20190711
  Serious: Yes (Other)
  Sender: FDA-Public Use
  Company Number: US-ASTRAZENECA-2018SE33562

PATIENT
  Age: 15286 Day
  Sex: Female

DRUGS (51)
  1. EFFEXOR [Concomitant]
     Active Substance: VENLAFAXINE HYDROCHLORIDE
  2. BTAFLEX [Concomitant]
  3. ADVAIR DISKUS [Concomitant]
     Active Substance: FLUTICASONE PROPIONATE\SALMETEROL XINAFOATE
  4. CEPHALEXIN. [Concomitant]
     Active Substance: CEPHALEXIN
  5. VENLAFAXINE [Concomitant]
     Active Substance: VENLAFAXINE HYDROCHLORIDE
  6. SIMVASTATIN. [Concomitant]
     Active Substance: SIMVASTATIN
  7. METHYLIN [Concomitant]
     Active Substance: METHYLPHENIDATE HYDROCHLORIDE
  8. JANUVIA [Concomitant]
     Active Substance: SITAGLIPTIN PHOSPHATE
  9. ZANAFLEX [Concomitant]
     Active Substance: TIZANIDINE HYDROCHLORIDE
  10. NEXIUM [Suspect]
     Active Substance: ESOMEPRAZOLE MAGNESIUM
     Indication: GASTROOESOPHAGEAL REFLUX DISEASE
     Route: 048
     Dates: start: 2013, end: 2014
  11. PROTONIX [Suspect]
     Active Substance: PANTOPRAZOLE SODIUM
     Indication: GASTROOESOPHAGEAL REFLUX DISEASE
     Route: 065
     Dates: start: 2013, end: 2015
  12. AMBIEN [Concomitant]
     Active Substance: ZOLPIDEM TARTRATE
  13. PANTOPRAZOLE [Concomitant]
     Active Substance: PANTOPRAZOLE
     Route: 048
     Dates: start: 20141211
  14. ONDANSETRON [Concomitant]
     Active Substance: ONDANSETRON
  15. GLIMEPIRIDE. [Concomitant]
     Active Substance: GLIMEPIRIDE
  16. AMPHETAMINE [Concomitant]
     Active Substance: AMPHETAMINE
  17. NEXIUM [Suspect]
     Active Substance: ESOMEPRAZOLE MAGNESIUM
     Indication: GASTROOESOPHAGEAL REFLUX DISEASE
     Route: 048
     Dates: start: 2005, end: 2017
  18. NEXIUM [Suspect]
     Active Substance: ESOMEPRAZOLE MAGNESIUM
     Indication: GASTROOESOPHAGEAL REFLUX DISEASE
     Route: 048
     Dates: start: 20050907
  19. CLONIDINE. [Concomitant]
     Active Substance: CLONIDINE
  20. RANITIDINE. [Concomitant]
     Active Substance: RANITIDINE
  21. CLONAZEPAM. [Concomitant]
     Active Substance: CLONAZEPAM
  22. ZALEPLON. [Concomitant]
     Active Substance: ZALEPLON
  23. IBUPROFEN. [Concomitant]
     Active Substance: IBUPROFEN
  24. TRICOR [Concomitant]
     Active Substance: FENOFIBRATE
  25. CARISOPRODOL. [Concomitant]
     Active Substance: CARISOPRODOL
  26. ATORVASTATIN [Concomitant]
     Active Substance: ATORVASTATIN
  27. LISINOPRIL. [Concomitant]
     Active Substance: LISINOPRIL
  28. LYRICA [Concomitant]
     Active Substance: PREGABALIN
  29. NEXIUM [Suspect]
     Active Substance: ESOMEPRAZOLE MAGNESIUM
     Indication: GASTROOESOPHAGEAL REFLUX DISEASE
     Route: 048
     Dates: start: 2009, end: 2017
  30. DEXILANT [Suspect]
     Active Substance: DEXLANSOPRAZOLE
     Indication: GASTROOESOPHAGEAL REFLUX DISEASE
     Route: 065
     Dates: start: 2005, end: 2017
  31. DEXILANT [Suspect]
     Active Substance: DEXLANSOPRAZOLE
     Indication: GASTROOESOPHAGEAL REFLUX DISEASE
     Route: 065
     Dates: start: 20110823
  32. PREDNISONE. [Concomitant]
     Active Substance: PREDNISONE
  33. ADDERALL [Concomitant]
     Active Substance: AMPHETAMINE ASPARTATE\AMPHETAMINE SULFATE\DEXTROAMPHETAMINE SACCHARATE\DEXTROAMPHETAMINE SULFATE
  34. TRIMETHOBENZAMIDE [Concomitant]
     Active Substance: TRIMETHOBENZAMIDE
  35. LUNESTA [Concomitant]
     Active Substance: ESZOPICLONE
  36. PHENTERMINE. [Concomitant]
     Active Substance: PHENTERMINE
  37. XANAX [Concomitant]
     Active Substance: ALPRAZOLAM
  38. ZYPREXA [Concomitant]
     Active Substance: OLANZAPINE
  39. CYCLOBENZAPRINE. [Concomitant]
     Active Substance: CYCLOBENZAPRINE
  40. DILAUDID [Concomitant]
     Active Substance: HYDROMORPHONE HYDROCHLORIDE
  41. DEXILANT [Suspect]
     Active Substance: DEXLANSOPRAZOLE
     Indication: GASTROOESOPHAGEAL REFLUX DISEASE
     Route: 065
     Dates: start: 2009, end: 2017
  42. SUCRALFATE. [Concomitant]
     Active Substance: SUCRALFATE
  43. IMITREX [Concomitant]
     Active Substance: SUMATRIPTAN SUCCINATE
  44. PRILOSEC [Concomitant]
     Active Substance: OMEPRAZOLE MAGNESIUM
     Route: 048
  45. PERCOCET [Concomitant]
     Active Substance: ACETAMINOPHEN\OXYCODONE HYDROCHLORIDE
  46. PREVACID [Suspect]
     Active Substance: LANSOPRAZOLE
     Route: 065
     Dates: start: 2005, end: 2017
  47. HYDROCODONE BITARTRATE AND ACETAMINOPHEN [Concomitant]
     Active Substance: ACETAMINOPHEN\HYDROCODONE BITARTRATE
  48. BUTORPHANOL [Concomitant]
     Active Substance: BUTORPHANOL
  49. LORCASERIN [Concomitant]
     Active Substance: LORCASERIN HYDROCHLORIDE
  50. HUMALOG [Concomitant]
     Active Substance: INSULIN LISPRO
  51. MORPHINE [Concomitant]
     Active Substance: MORPHINE

REACTIONS (3)
  - Chronic kidney disease [Unknown]
  - Acute kidney injury [Not Recovered/Not Resolved]
  - Renal failure [Not Recovered/Not Resolved]

NARRATIVE: CASE EVENT DATE: 20141118
